FAERS Safety Report 6447255-X (Version None)
Quarter: 2009Q4

REPORT INFORMATION
  Report Type: 
  Country: None (occurrence: None)
  Receive Date: 20091119
  Receipt Date: 20091117
  Transmission Date: 20100525
  Serious: Yes (Hospitalization, Other)
  Sender: FDA-Public Use
  Company Number: JP-PFIZER INC-2009200230

PATIENT
  Age: 56 Year
  Sex: Male

DRUGS (3)
  1. AZULFIDINE [Suspect]
     Indication: MUSCULOSKELETAL PAIN
     Dosage: 500 MG, 2X/DAY
     Route: 048
     Dates: start: 20090307, end: 20090413
  2. RHEUMATREX [Concomitant]
     Dosage: 8 MG, WEEKLY
     Dates: start: 20080701, end: 20090325
  3. ALL OTHER THERAPEUTIC PRODUCTS [Concomitant]

REACTIONS (4)
  - DIARRHOEA [None]
  - GRANULOCYTE COUNT DECREASED [None]
  - MENTAL DISORDER [None]
  - SOMNOLENCE [None]
